FAERS Safety Report 4668661-X (Version None)
Quarter: 2005Q2

REPORT INFORMATION
  Report Type: 
  Country: None (occurrence: None)
  Receive Date: 20050523
  Receipt Date: 20041209
  Transmission Date: 20051028
  Serious: No
  Sender: FDA-Public Use
  Company Number: US-GLAXOSMITHKLINE-A0536796A

PATIENT
  Age: 53 Year
  Sex: Male
  Weight: 91 kg

DRUGS (5)
  1. FLOLAN [Suspect]
     Dosage: 60.4NG CONTINUOUS
     Route: 042
     Dates: start: 19971201
  2. NAPROXEN [Suspect]
     Indication: DRUG USE FOR UNKNOWN INDICATION
     Dosage: 500MG TWICE PER DAY
     Route: 048
     Dates: start: 20041119
  3. MULTI-VITAMIN [Concomitant]
     Dosage: 1U PER DAY
     Route: 048
  4. COUMADIN [Concomitant]
     Dosage: 3MG PER DAY
     Route: 048
  5. OXYGEN [Concomitant]
     Dosage: 4LM CONTINUOUS

REACTIONS (1)
  - DYSPNOEA [None]
